FAERS Safety Report 9029100 (Version 2)
Quarter: 2013Q1

REPORT INFORMATION
  Report Type: Spontaneous
  Country: IT (occurrence: IT)
  Receive Date: 20130122
  Receipt Date: 20130131
  Transmission Date: 20140127
  Serious: Yes (Hospitalization)
  Sender: FDA-Public Use
  Company Number: IT-ROCHE-1179967

PATIENT
  Age: 86 Year
  Sex: Female

DRUGS (7)
  1. RIVOTRIL [Suspect]
     Indication: PRODUCT USED FOR UNKNOWN INDICATION
     Route: 048
     Dates: start: 20120709, end: 20120715
  2. SERTRALINE HYDROCHLORIDE [Concomitant]
     Route: 048
     Dates: start: 20120101, end: 20120715
  3. OMEPRAZOLO [Concomitant]
     Route: 048
     Dates: start: 20120101, end: 20120715
  4. RAMIPRIL [Concomitant]
     Indication: HYPERTENSION
     Route: 048
     Dates: start: 20120101, end: 20120715
  5. VITAMIN D3 [Concomitant]
     Route: 048
     Dates: start: 20120101, end: 20120715
  6. TRAVATAN [Concomitant]
     Indication: GLAUCOMA
     Route: 047
     Dates: start: 20120101, end: 20120715
  7. CARDIRENE [Concomitant]
     Route: 048
     Dates: start: 20120101, end: 20120715

REACTIONS (2)
  - Psychomotor retardation [Recovering/Resolving]
  - Fall [Unknown]
